FAERS Safety Report 9381237 (Version 5)
Quarter: 2014Q2

REPORT INFORMATION
  Report Type: Spontaneous
  Country: US (occurrence: US)
  Receive Date: 20130703
  Receipt Date: 20140404
  Transmission Date: 20141212
  Serious: No
  Sender: FDA-Public Use
  Company Number: US-PFIZER INC-2013194776

PATIENT
  Age: 42 Year
  Sex: Female
  Weight: 64.4 kg

DRUGS (14)
  1. LYRICA [Suspect]
     Indication: FIBROMYALGIA
     Dosage: 150 MG, DAILY
     Route: 048
     Dates: start: 20101027
  2. LYRICA [Suspect]
     Indication: NEURALGIA
     Dosage: 75 MG, 3X/DAY
     Route: 048
     Dates: start: 2011
  3. LYRICA [Suspect]
     Indication: MYALGIA
     Dosage: 75 MG, 3X/DAY
     Route: 048
     Dates: start: 20121218
  4. LYRICA [Suspect]
     Indication: NEURITIS
     Dosage: 75 MG, 3X/DAY
     Route: 048
     Dates: start: 20140211
  5. LYRICA [Suspect]
     Indication: MYOSITIS
  6. ZOLOFT [Concomitant]
     Indication: GENERALISED ANXIETY DISORDER
     Dosage: 100 MG, 1X/DAY (1 QD)
  7. ZOLOFT [Concomitant]
     Indication: DEPRESSION
  8. MOBIC [Concomitant]
     Dosage: 15 MG, DAILY
     Route: 048
     Dates: start: 20140211
  9. RITALIN [Concomitant]
     Dosage: 5 MG, DAILY
     Route: 048
     Dates: start: 20140211
  10. SERTRALINE [Concomitant]
     Dosage: 100 MG, DAILY
     Route: 048
     Dates: start: 20140211
  11. VERAMYST [Concomitant]
     Dosage: 55 UG, DAILY (27.5 MCG 2 SPRAY DAILY)
     Route: 045
     Dates: start: 20120308
  12. SINGULAIR [Concomitant]
     Dosage: 10 MG, 1X/DAY (AT BEDTIME)
     Route: 048
     Dates: start: 20100903
  13. LOESTRIN [Concomitant]
     Dosage: UNK, 1-20 MG-MCG
     Route: 048
     Dates: start: 20090519
  14. DICLOFENAC SODIUM [Concomitant]
     Dosage: 75 MG, 2X/DAY
     Route: 048
     Dates: start: 20111110

REACTIONS (7)
  - Weight decreased [Unknown]
  - Therapeutic response changed [Unknown]
  - Drug withdrawal syndrome [Unknown]
  - Limb discomfort [Unknown]
  - Paraesthesia [Unknown]
  - Migraine [Unknown]
  - Headache [Unknown]
